FAERS Safety Report 12469584 (Version 1)
Quarter: 2016Q2

REPORT INFORMATION
  Report Type: Spontaneous
  Country: PT (occurrence: PT)
  Receive Date: 20160615
  Receipt Date: 20160615
  Transmission Date: 20160815
  Serious: Yes (Life-Threatening, Hospitalization, Other)
  Sender: FDA-Public Use
  Company Number: PT-TEVA-668148ISR

PATIENT
  Age: 41 Year
  Sex: Male

DRUGS (1)
  1. OLANZAPINE. [Suspect]
     Active Substance: OLANZAPINE

REACTIONS (6)
  - Catatonia [Recovered/Resolved]
  - Mutism [Recovered/Resolved]
  - Neuroleptic malignant syndrome [Recovered/Resolved]
  - Immobile [Recovered/Resolved]
  - Disorganised speech [Recovered/Resolved]
  - Negativism [Recovered/Resolved]
